FAERS Safety Report 25592118 (Version 1)
Quarter: 2025Q3

REPORT INFORMATION
  Report Type: Spontaneous
  Country: EU (occurrence: EU)
  Receive Date: 20250722
  Receipt Date: 20250722
  Transmission Date: 20251021
  Serious: Yes (Other)
  Sender: MYLAN
  Company Number: None

PATIENT
  Age: 92 Year
  Sex: Female

DRUGS (20)
  1. AMLODIPINE [Interacting]
     Active Substance: AMLODIPINE BESYLATE
     Indication: Hypertension
     Dosage: 5 MILLIGRAM, QD (BETWEEN 17:00 TO 18:00)
     Dates: start: 202412
  2. AMLODIPINE [Interacting]
     Active Substance: AMLODIPINE BESYLATE
     Dosage: 5 MILLIGRAM, QD (BETWEEN 17:00 TO 18:00)
     Route: 065
     Dates: start: 202412
  3. AMLODIPINE [Interacting]
     Active Substance: AMLODIPINE BESYLATE
     Dosage: 5 MILLIGRAM, QD (BETWEEN 17:00 TO 18:00)
     Route: 065
     Dates: start: 202412
  4. AMLODIPINE [Interacting]
     Active Substance: AMLODIPINE BESYLATE
     Dosage: 5 MILLIGRAM, QD (BETWEEN 17:00 TO 18:00)
     Dates: start: 202412
  5. BISOPROLOL [Interacting]
     Active Substance: BISOPROLOL
     Indication: Hypertension
     Dosage: 2.5 MILLIGRAM, QD (BETWEEN 17:00 TO 18:00)
     Dates: start: 202412
  6. BISOPROLOL [Interacting]
     Active Substance: BISOPROLOL
     Dosage: 2.5 MILLIGRAM, QD (BETWEEN 17:00 TO 18:00)
     Route: 065
     Dates: start: 202412
  7. BISOPROLOL [Interacting]
     Active Substance: BISOPROLOL
     Dosage: 2.5 MILLIGRAM, QD (BETWEEN 17:00 TO 18:00)
     Route: 065
     Dates: start: 202412
  8. BISOPROLOL [Interacting]
     Active Substance: BISOPROLOL
     Dosage: 2.5 MILLIGRAM, QD (BETWEEN 17:00 TO 18:00)
     Dates: start: 202412
  9. MELPERONE [Suspect]
     Active Substance: MELPERONE
     Indication: Initial insomnia
     Dosage: 25 MILLIGRAM, QD (MELPERON TABLET EVERY DAY BETWEEN 17:00 AND 18:00 TOGETHER WITH THREE)
     Dates: start: 202412
  10. MELPERONE [Suspect]
     Active Substance: MELPERONE
     Dosage: 25 MILLIGRAM, QD (MELPERON TABLET EVERY DAY BETWEEN 17:00 AND 18:00 TOGETHER WITH THREE)
     Route: 065
     Dates: start: 202412
  11. MELPERONE [Suspect]
     Active Substance: MELPERONE
     Dosage: 25 MILLIGRAM, QD (MELPERON TABLET EVERY DAY BETWEEN 17:00 AND 18:00 TOGETHER WITH THREE)
     Route: 065
     Dates: start: 202412
  12. MELPERONE [Suspect]
     Active Substance: MELPERONE
     Dosage: 25 MILLIGRAM, QD (MELPERON TABLET EVERY DAY BETWEEN 17:00 AND 18:00 TOGETHER WITH THREE)
     Dates: start: 202412
  13. VALSARTAN [Interacting]
     Active Substance: VALSARTAN
     Indication: Hypertension
     Dosage: 160 MILLIGRAM, QD (BETWEEN 17:00 TO 18:00)
     Dates: start: 202412
  14. VALSARTAN [Interacting]
     Active Substance: VALSARTAN
     Dosage: 160 MILLIGRAM, QD (BETWEEN 17:00 TO 18:00)
     Route: 065
     Dates: start: 202412
  15. VALSARTAN [Interacting]
     Active Substance: VALSARTAN
     Dosage: 160 MILLIGRAM, QD (BETWEEN 17:00 TO 18:00)
     Route: 065
     Dates: start: 202412
  16. VALSARTAN [Interacting]
     Active Substance: VALSARTAN
     Dosage: 160 MILLIGRAM, QD (BETWEEN 17:00 TO 18:00)
     Dates: start: 202412
  17. ZOPICLONE [Concomitant]
     Active Substance: ZOPICLONE
     Indication: Initial insomnia
  18. ZOPICLONE [Concomitant]
     Active Substance: ZOPICLONE
     Route: 065
  19. ZOPICLONE [Concomitant]
     Active Substance: ZOPICLONE
     Route: 065
  20. ZOPICLONE [Concomitant]
     Active Substance: ZOPICLONE

REACTIONS (4)
  - Living in residential institution [Unknown]
  - Feeling abnormal [Unknown]
  - Hypoaesthesia [Unknown]
  - Drug interaction [Unknown]
